FAERS Safety Report 15461138 (Version 1)
Quarter: 2018Q4

REPORT INFORMATION
  Report Type: Spontaneous
  Country: GB (occurrence: GB)
  Receive Date: 20181003
  Receipt Date: 20181003
  Transmission Date: 20190204
  Serious: Yes (Hospitalization)
  Sender: FDA-Public Use
  Company Number: GB-NOVOPROD-623964

PATIENT
  Age: 36 Year
  Sex: Female
  Weight: 60 kg

DRUGS (4)
  1. MICROGYNON                         /00022701/ [Concomitant]
     Active Substance: ETHINYL ESTRADIOL\LEVONORGESTREL ACETATE
     Indication: PRODUCT USED FOR UNKNOWN INDICATION
     Dosage: UNK
     Route: 065
  2. CETIRIZINE DIHYDROCHLORIDE [Concomitant]
     Active Substance: CETIRIZINE HYDROCHLORIDE
     Indication: PRODUCT USED FOR UNKNOWN INDICATION
     Dosage: UNK
     Route: 065
  3. LEVEMIR [Concomitant]
     Active Substance: INSULIN DETEMIR
     Indication: PRODUCT USED FOR UNKNOWN INDICATION
     Dosage: UNK
     Route: 065
  4. FIASP [Suspect]
     Active Substance: INSULIN ASPART
     Indication: PRODUCT USED FOR UNKNOWN INDICATION
     Dosage: 1 UNIT PER 7.5G CARBS
     Route: 051
     Dates: start: 20180910, end: 20180910

REACTIONS (4)
  - Dizziness [Recovered/Resolved]
  - Feeling drunk [Recovered/Resolved]
  - Disorientation [Recovered/Resolved]
  - Heart rate increased [Unknown]

NARRATIVE: CASE EVENT DATE: 20180910
